FAERS Safety Report 6726838-3 (Version None)
Quarter: 2010Q2

REPORT INFORMATION
  Report Type: 
  Country: None (occurrence: None)
  Receive Date: 20100516
  Receipt Date: 20100504
  Transmission Date: 20101027
  Serious: Yes (Death, Other)
  Sender: FDA-Public Use
  Company Number: US-BRISTOL-MYERS SQUIBB COMPANY-15070725

PATIENT
  Age: 63 Year
  Sex: Male

DRUGS (5)
  1. ONGLYZA [Suspect]
     Indication: DIABETES MELLITUS
     Route: 048
     Dates: start: 20100215
  2. METFORMIN HCL [Suspect]
     Indication: DIABETES MELLITUS
  3. LOTREL [Concomitant]
     Dosage: 1 DF = 10/40 UNIT NOS
  4. ARTHROTEC [Concomitant]
     Dosage: 1 DF = 75 UNIT NOS
  5. LIPITOR [Concomitant]

REACTIONS (2)
  - DEATH [None]
  - INTENTIONAL OVERDOSE [None]
